FAERS Safety Report 23601155 (Version 1)
Quarter: 2024Q1

REPORT INFORMATION
  Report Type: Report from Study
  Country: US (occurrence: US)
  Receive Date: 20240306
  Receipt Date: 20240306
  Transmission Date: 20240410
  Serious: Yes (Hospitalization)
  Sender: FDA-Public Use
  Company Number: US-TAKEDA-2023TUS043783

PATIENT
  Sex: Female
  Weight: 80 kg

DRUGS (24)
  1. HUMAN IMMUNOGLOBULIN G\HYALURONIDASE RECOMBINANT HUMAN [Suspect]
     Active Substance: HUMAN IMMUNOGLOBULIN G\HYALURONIDASE (HUMAN RECOMBINANT)
     Indication: Immune system disorder
     Dosage: 30 GRAM, Q3WEEKS
     Route: 058
     Dates: start: 20220311
  2. DIPHENHYDRAMINE [Concomitant]
     Active Substance: DIPHENHYDRAMINE
  3. TRULICITY [Concomitant]
     Active Substance: DULAGLUTIDE
  4. SODIUM CHLORATE [Concomitant]
     Active Substance: SODIUM CHLORATE
  5. EPINEPHRINE [Concomitant]
     Active Substance: EPINEPHRINE
  6. XOLAIR [Concomitant]
     Active Substance: OMALIZUMAB
  7. ATORVASTATIN CALCIUM [Concomitant]
     Active Substance: ATORVASTATIN CALCIUM
  8. CALCIUM [Concomitant]
     Active Substance: CALCIUM
  9. WELLBUTRIN XL [Concomitant]
     Active Substance: BUPROPION HYDROCHLORIDE
  10. ZYRTEC [Concomitant]
     Active Substance: CETIRIZINE HYDROCHLORIDE
  11. PROVENTIL HFA [Concomitant]
     Active Substance: ALBUTEROL SULFATE
  12. TRELEGY ELLIPTA [Concomitant]
     Active Substance: FLUTICASONE FUROATE\UMECLIDINIUM BROMIDE\VILANTEROL TRIFENATATE
  13. ACETAMINOPHEN [Concomitant]
     Active Substance: ACETAMINOPHEN
  14. SINGULAIR [Concomitant]
     Active Substance: MONTELUKAST SODIUM
  15. HYDROCHLOROTHIAZIDE [Concomitant]
     Active Substance: HYDROCHLOROTHIAZIDE
  16. BIOTIN [Concomitant]
     Active Substance: BIOTIN
  17. IRON [Concomitant]
     Active Substance: IRON
  18. METFORMIN HYDROCHLORIDE [Concomitant]
     Active Substance: METFORMIN HYDROCHLORIDE
  19. LOSARTAN POTASSIUM [Concomitant]
     Active Substance: LOSARTAN POTASSIUM
  20. ASPIRIN [Concomitant]
     Active Substance: ASPIRIN
  21. LIDOCAINE [Concomitant]
     Active Substance: LIDOCAINE
  22. AMLODIPINE BESYLATE [Concomitant]
     Active Substance: AMLODIPINE BESYLATE
  23. TEZSPIRE [Concomitant]
     Active Substance: TEZEPELUMAB-EKKO
     Dosage: UNK
     Route: 065
  24. DIPHENHYDRAMINE HYDROCHLORIDE [Concomitant]
     Active Substance: DIPHENHYDRAMINE HYDROCHLORIDE
     Dosage: UNK
     Route: 065

REACTIONS (4)
  - Fall [Unknown]
  - Head injury [Unknown]
  - Upper respiratory tract infection [Unknown]
  - Sinusitis [Unknown]
